FAERS Safety Report 15788971 (Version 1)
Quarter: 2019Q1

REPORT INFORMATION
  Report Type: Spontaneous
  Country: US (occurrence: US)
  Receive Date: 20190104
  Receipt Date: 20190104
  Transmission Date: 20190417
  Serious: No
  Sender: FDA-Public Use
  Company Number: US-ALLERGAN-1801747US

PATIENT
  Sex: Female

DRUGS (1)
  1. NAMZARIC [Suspect]
     Active Substance: DONEPEZIL HYDROCHLORIDE\MEMANTINE HYDROCHLORIDE
     Indication: DEMENTIA ALZHEIMER^S TYPE
     Dosage: UNK UNK, Q WEEK
     Route: 048
     Dates: start: 2017

REACTIONS (6)
  - Migraine [Unknown]
  - Food refusal [Unknown]
  - Therapeutic response decreased [Unknown]
  - Irritability [Unknown]
  - Inappropriate schedule of product administration [Unknown]
  - Nausea [Unknown]
